FAERS Safety Report 4541211-4 (Version None)
Quarter: 2004Q4

REPORT INFORMATION
  Report Type: 
  Country: None (occurrence: None)
  Receive Date: 20041227
  Receipt Date: 20041208
  Transmission Date: 20050328
  Serious: Yes (Hospitalization)
  Sender: FDA-Public Use
  Company Number: HQWYE029225OCT04

PATIENT
  Sex: Male

DRUGS (1)
  1. EFFEXOR [Suspect]
     Indication: ANXIETY
     Dosage: 37.5 MG 1X PER 1 TOT
     Route: 048
     Dates: start: 20041018, end: 20041018

REACTIONS (6)
  - ARTERIAL DISORDER [None]
  - BLOOD PRESSURE INCREASED [None]
  - DYSPNOEA [None]
  - TONGUE OEDEMA [None]
  - TREMOR [None]
  - VISION BLURRED [None]
